FAERS Safety Report 7282001-1 (Version None)
Quarter: 2011Q1

REPORT INFORMATION
  Report Type: 
  Country: None (occurrence: None)
  Receive Date: 20110208
  Receipt Date: 20110201
  Transmission Date: 20110831
  Serious: Yes (Hospitalization, Other)
  Sender: FDA-Public Use
  Company Number: US-US-EMD SERONO, INC.-7039720

PATIENT
  Sex: Male

DRUGS (1)
  1. REBIF [Suspect]
     Indication: MULTIPLE SCLEROSIS
     Route: 058
     Dates: start: 20090128

REACTIONS (11)
  - LIMB CRUSHING INJURY [None]
  - HIP FRACTURE [None]
  - SPINAL FRACTURE [None]
  - LOSS OF CONSCIOUSNESS [None]
  - UPPER LIMB FRACTURE [None]
  - LIMB TRAUMATIC AMPUTATION [None]
  - ROAD TRAFFIC ACCIDENT [None]
  - SENSORY LOSS [None]
  - MUSCLE ATROPHY [None]
  - INJECTION SITE ERYTHEMA [None]
  - INJECTION SITE HAEMATOMA [None]
